FAERS Safety Report 6187107-6 (Version None)
Quarter: 2009Q2

REPORT INFORMATION
  Report Type: 
  Country: None (occurrence: None)
  Receive Date: 20090512
  Receipt Date: 20090424
  Transmission Date: 20091009
  Serious: Yes (Other)
  Sender: FDA-Public Use
  Company Number: CH-BAYER-200919857GPV

PATIENT
  Age: 28 Year
  Sex: Male

DRUGS (1)
  1. CIPROFLOXACIN HCL [Suspect]
     Indication: CYSTIC FIBROSIS
     Dosage: SEVERAL COURSES DURING A YEAR
     Route: 065

REACTIONS (3)
  - DRY MOUTH [None]
  - DYSLALIA [None]
  - ENAMEL ANOMALY [None]
